FAERS Safety Report 7923911-9 (Version None)
Quarter: 2011Q4

REPORT INFORMATION
  Report Type: 
  Country: None (occurrence: None)
  Receive Date: 20111117
  Receipt Date: 20110210
  Transmission Date: 20120403
  Serious: No
  Sender: FDA-Public Use
  Company Number: US-AMGEN-USASP2011008003

PATIENT
  Age: 44 Year
  Sex: Female
  Weight: 65.306 kg

DRUGS (3)
  1. XANAX [Concomitant]
     Dosage: 0.5 MG, UNK
  2. ENBREL [Suspect]
     Indication: PRODUCT USED FOR UNKNOWN INDICATION
     Dosage: 50 MG, QWK
     Route: 058
  3. FLEXERIL [Concomitant]
     Dosage: 10 MG, UNK

REACTIONS (2)
  - NASOPHARYNGITIS [None]
  - INFLUENZA [None]
